FAERS Safety Report 4366774-3 (Version None)
Quarter: 2004Q2

REPORT INFORMATION
  Report Type: 
  Country: None (occurrence: None)
  Receive Date: 20040526
  Receipt Date: 20040526
  Transmission Date: 20050107
  Serious: Yes (Other)
  Sender: FDA-Public Use
  Company Number: None

PATIENT
  Sex: Female

DRUGS (3)
  1. DURAGESIC [Suspect]
     Dosage: 10 PATCHES / MONTH
     Dates: start: 20040101, end: 20040401
  2. DURAGESIC [Suspect]
  3. DURAGESIC [Suspect]

REACTIONS (8)
  - ABDOMINAL DISCOMFORT [None]
  - DRUG WITHDRAWAL SYNDROME [None]
  - HYPERHIDROSIS [None]
  - INSOMNIA [None]
  - PHARMACEUTICAL PRODUCT COMPLAINT [None]
  - TREMOR [None]
  - VOMITING [None]
  - WEIGHT DECREASED [None]
